FAERS Safety Report 21119324 (Version 3)
Quarter: 2022Q4

REPORT INFORMATION
  Report Type: Spontaneous
  Country: IT (occurrence: IT)
  Receive Date: 20220722
  Receipt Date: 20221013
  Transmission Date: 20230113
  Serious: No
  Sender: FDA-Public Use
  Company Number: IT-SA-SAC20220720000912

PATIENT
  Age: 65 Year
  Sex: Female

DRUGS (5)
  1. CABLIVI [Suspect]
     Active Substance: CAPLACIZUMAB-YHDP
     Indication: Thrombotic thrombocytopenic purpura
     Dosage: 10 MG, QD
     Route: 058
  2. CABLIVI [Suspect]
     Active Substance: CAPLACIZUMAB-YHDP
     Dosage: 10 MG, QD
     Route: 058
  3. BORTEZOMIB [Concomitant]
     Active Substance: BORTEZOMIB
     Indication: Immunosuppressant drug therapy
     Dosage: UNK
     Route: 042
  4. BORTEZOMIB [Concomitant]
     Active Substance: BORTEZOMIB
     Indication: Immune system disorder
  5. CYCLOPHOSPHAMIDE [Concomitant]
     Active Substance: CYCLOPHOSPHAMIDE
     Indication: Immune system disorder
     Dosage: UNK
     Route: 065

REACTIONS (1)
  - Off label use [Unknown]
